FAERS Safety Report 6201089-X (Version None)
Quarter: 2009Q2

REPORT INFORMATION
  Report Type: 
  Country: None (occurrence: None)
  Receive Date: 20090526
  Receipt Date: 20090521
  Transmission Date: 20091009
  Serious: Yes (Life-Threatening, Hospitalization)
  Sender: FDA-Public Use
  Company Number: GB-BRISTOL-MYERS SQUIBB COMPANY-14633093

PATIENT
  Age: 84 Year
  Sex: Female
  Weight: 65 kg

DRUGS (9)
  1. TRIAMCINOLONE ACETONIDE [Suspect]
     Indication: BACK PAIN
     Route: 008
     Dates: start: 20081124, end: 20081124
  2. LIGNOCAINE [Suspect]
     Indication: BACK PAIN
     Dosage: LIGNOCAINE 0.5%
     Dates: start: 20081124, end: 20081124
  3. ASPIRIN [Concomitant]
  4. BENDROFLUMETHIAZIDE [Concomitant]
  5. DONEPEZIL HCL [Concomitant]
  6. GABAPENTIN [Concomitant]
  7. MEBEVERINE [Concomitant]
  8. OMEPRAZOLE [Concomitant]
  9. TRAMADOL HCL [Concomitant]

REACTIONS (1)
  - ANAPHYLACTIC REACTION [None]
